FAERS Safety Report 6113987-6 (Version None)
Quarter: 2009Q1

REPORT INFORMATION
  Report Type: 
  Country: None (occurrence: None)
  Receive Date: 20090312
  Receipt Date: 20081106
  Transmission Date: 20090719
  Serious: No
  Sender: FDA-Public Use
  Company Number: US-ABBOTT-08P-163-0483215-00

PATIENT
  Sex: Female
  Weight: 59.928 kg

DRUGS (4)
  1. LUPRON DEPOT [Suspect]
     Indication: ENDOMETRIOSIS
     Route: 030
     Dates: start: 20080918
  2. TYLOX [Concomitant]
     Indication: PAIN
  3. VICODIN [Concomitant]
     Indication: PAIN
  4. VITAMIN TAB [Concomitant]
     Indication: DRUG USE FOR UNKNOWN INDICATION

REACTIONS (7)
  - AGITATION [None]
  - ANTISOCIAL BEHAVIOUR [None]
  - DEPRESSION [None]
  - INAPPROPRIATE AFFECT [None]
  - MOOD SWINGS [None]
  - PERSONALITY DISORDER [None]
  - WEIGHT INCREASED [None]
